FAERS Safety Report 5108287-7 (Version None)
Quarter: 2006Q3

REPORT INFORMATION
  Report Type: 
  Country: None (occurrence: None)
  Receive Date: 20060914
  Receipt Date: 20060914
  Transmission Date: 20061208
  Serious: Yes (Other)
  Sender: FDA-Public Use
  Company Number: None

PATIENT
  Sex: Male
  Weight: 95.2554 kg

DRUGS (5)
  1. NIACIN [Suspect]
     Indication: HYPERLIPIDAEMIA
     Dosage: 1 500 MG TAB PO HS
     Route: 048
     Dates: start: 20051201, end: 20060309
  2. LISINOPRIL [Concomitant]
  3. LOVASTATIN [Concomitant]
  4. METOPROLOL [Concomitant]
  5. VARDENAFIL [Concomitant]

REACTIONS (1)
  - RASH [None]
